FAERS Safety Report 7966276-9 (Version None)
Quarter: 2011Q4

REPORT INFORMATION
  Report Type: 
  Country: None (occurrence: None)
  Receive Date: 20111208
  Receipt Date: 20111130
  Transmission Date: 20120403
  Serious: Yes (Other)
  Sender: FDA-Public Use
  Company Number: US-ABBOTT-11P-163-0879860-00

PATIENT
  Sex: Female
  Weight: 65.83 kg

DRUGS (17)
  1. SPIRIVA [Concomitant]
     Indication: CHRONIC OBSTRUCTIVE PULMONARY DISEASE
     Dosage: DISK
     Route: 055
  2. HUMIRA [Suspect]
     Indication: PSORIATIC ARTHROPATHY
     Route: 058
     Dates: start: 20110330, end: 20110801
  3. SPIRIVA [Concomitant]
     Indication: ASTHMA
  4. HYDROCHLOROTHIAZIDE [Concomitant]
     Indication: HYPERTENSION
     Route: 048
  5. CELEBREX [Concomitant]
     Indication: ARTHRITIS
     Route: 048
  6. ADVAIR DISKUS 100/50 [Concomitant]
     Indication: CHRONIC OBSTRUCTIVE PULMONARY DISEASE
     Dosage: 250/50 DAILY
     Route: 055
  7. FOLBRIC BRE [Concomitant]
     Indication: VITAMIN SUPPLEMENTATION
     Route: 048
  8. CITRACAL [Concomitant]
     Indication: MINERAL SUPPLEMENTATION
     Route: 048
  9. VITAMIN D [Concomitant]
     Indication: VITAMIN SUPPLEMENTATION
     Dosage: SOFT GELS
     Route: 048
  10. DIOVAN [Concomitant]
     Indication: HYPERTENSION
     Dosage: AT BEDTIME
     Route: 048
  11. FUROSEMIDE [Concomitant]
     Indication: SWELLING
     Route: 048
     Dates: start: 20100101
  12. SIMVASTATIN [Concomitant]
     Indication: BLOOD CHOLESTEROL INCREASED
     Route: 048
  13. HUMIRA [Suspect]
     Route: 058
     Dates: start: 20111116
  14. ADVAIR DISKUS 100/50 [Concomitant]
     Indication: ASTHMA
  15. POTASSIUM ACETATE [Concomitant]
     Indication: MINERAL SUPPLEMENTATION
     Route: 048
  16. BYSTOLIC [Concomitant]
     Indication: HYPERTENSION
     Dosage: IN MORNING
     Route: 048
     Dates: start: 20100101
  17. MAGNESIUM OXIDE [Concomitant]
     Indication: MINERAL SUPPLEMENTATION
     Route: 048

REACTIONS (7)
  - PYREXIA [None]
  - INTESTINAL POLYP [None]
  - PAIN [None]
  - DIARRHOEA [None]
  - NASOPHARYNGITIS [None]
  - URINARY TRACT INFECTION [None]
  - RECTAL HAEMORRHAGE [None]
